FAERS Safety Report 23463162 (Version 5)
Quarter: 2024Q1

REPORT INFORMATION
  Report Type: Spontaneous
  Country: US (occurrence: US)
  Receive Date: 20240131
  Receipt Date: 20240312
  Transmission Date: 20240410
  Serious: No
  Sender: FDA-Public Use
  Company Number: US-PFIZER INC-PV202400012988

PATIENT
  Age: 77 Year
  Sex: Female

DRUGS (1)
  1. IBRANCE [Suspect]
     Active Substance: PALBOCICLIB
     Dosage: 125 MG
     Dates: start: 20230115

REACTIONS (7)
  - Nausea [Unknown]
  - Fatigue [Unknown]
  - Disturbance in attention [Unknown]
  - Dizziness [Unknown]
  - Malaise [Unknown]
  - Taste disorder [Unknown]
  - Product dose omission in error [Unknown]
